FAERS Safety Report 10223720 (Version 2)
Quarter: 2014Q2

REPORT INFORMATION
  Report Type: Report from Study
  Country: AR (occurrence: AR)
  Receive Date: 20140609
  Receipt Date: 20140609
  Transmission Date: 20141212
  Serious: Yes (Other)
  Sender: FDA-Public Use
  Company Number: AR-US-EMD SERONO, INC.-7293858

PATIENT
  Age: 15 Year
  Sex: Female

DRUGS (1)
  1. REBIF [Suspect]
     Indication: MULTIPLE SCLEROSIS
     Dates: start: 20130916

REACTIONS (3)
  - Abortion spontaneous [Unknown]
  - Haemorrhage [Unknown]
  - Maternal exposure timing unspecified [Recovered/Resolved]
